FAERS Safety Report 5193542-5 (Version None)
Quarter: 2006Q4

REPORT INFORMATION
  Report Type: 
  Country: None (occurrence: None)
  Receive Date: 20061228
  Receipt Date: 20060712
  Transmission Date: 20070319
  Serious: No
  Sender: FDA-Public Use
  Company Number: PAR-4233-AE

PATIENT
  Age: 67 Year
  Sex: Male
  Weight: 72.7 kg

DRUGS (4)
  1. FLUTICASONE PROPIONATE [Suspect]
     Indication: SINUS DISORDER
     Route: 045
     Dates: start: 20060101, end: 20060601
  2. FLONASE [Suspect]
     Indication: SINUS DISORDER
     Route: 045
     Dates: start: 20051001, end: 20060101
  3. LOTREL [Concomitant]
     Dates: start: 20050601
  4. DIOVAN [Concomitant]
     Dates: start: 20050601

REACTIONS (2)
  - INTRAOCULAR PRESSURE INCREASED [None]
  - PHARMACEUTICAL PRODUCT COMPLAINT [None]
